FAERS Safety Report 9240920 (Version 1)
Quarter: 2013Q2

REPORT INFORMATION
  Report Type: Spontaneous
  Country: US (occurrence: US)
  Receive Date: 20130418
  Receipt Date: 20130418
  Transmission Date: 20140414
  Serious: Yes (Other)
  Sender: FDA-Public Use
  Company Number: US-PFIZER INC-2013117870

PATIENT
  Age: 68 Year
  Sex: Male
  Weight: 83 kg

DRUGS (3)
  1. GLUCOTROL XL [Suspect]
     Indication: DIABETES MELLITUS
     Dosage: 10 MG, 1X/DAY
     Dates: start: 2003
  2. METFORMIN HCL [Suspect]
     Indication: DIABETES MELLITUS
     Dosage: TWO DOSES OF 500 MG IN MORNING AND ONE DOSE OF 500 MG AT NIGHT
  3. LIPITOR [Concomitant]
     Indication: BLOOD CHOLESTEROL ABNORMAL
     Dosage: 80 MG, 1X/DAY

REACTIONS (4)
  - Blood glucose decreased [Not Recovered/Not Resolved]
  - Presyncope [Unknown]
  - Photopsia [Unknown]
  - Visual acuity reduced [Unknown]
